FAERS Safety Report 21345544 (Version 1)
Quarter: 2022Q3

REPORT INFORMATION
  Report Type: Spontaneous
  Country: DE (occurrence: DE)
  Receive Date: 20220916
  Receipt Date: 20220916
  Transmission Date: 20221026
  Serious: Yes (Hospitalization, Other)
  Sender: FDA-Public Use
  Company Number: None

PATIENT
  Age: 44 Year
  Sex: Female

DRUGS (2)
  1. ETHINYL ESTRADIOL\LEVONORGESTREL [Suspect]
     Active Substance: ETHINYL ESTRADIOL\LEVONORGESTREL
     Dosage: UNK (ACCORDING TO SCHEME)
     Route: 048
  2. POTASSIUM IODIDE [Concomitant]
     Active Substance: POTASSIUM IODIDE
     Dosage: 200 UG, 1X/DAY
     Route: 048

REACTIONS (4)
  - Cerebral haemorrhage [Unknown]
  - Cerebral venous sinus thrombosis [Unknown]
  - Headache [Unknown]
  - Speech disorder [Unknown]
